FAERS Safety Report 4787053-6 (Version None)
Quarter: 2005Q4

REPORT INFORMATION
  Report Type: 
  Country: None (occurrence: None)
  Receive Date: 20051004
  Receipt Date: 20050927
  Transmission Date: 20060501
  Serious: Yes (Other)
  Sender: FDA-Public Use
  Company Number: US-JNJFOC-20050906843

PATIENT
  Age: 58 Year
  Sex: Female

DRUGS (4)
  1. RISPERDAL [Suspect]
     Indication: BIPOLAR DISORDER
  2. LITHIUM [Concomitant]
  3. COGENTIN [Concomitant]
  4. XANAX [Concomitant]

REACTIONS (2)
  - BONE MARROW FAILURE [None]
  - LEUKOPENIA [None]
